FAERS Safety Report 6535512-8 (Version None)
Quarter: 2010Q1

REPORT INFORMATION
  Report Type: 
  Country: None (occurrence: None)
  Receive Date: 20100105
  Receipt Date: 20091220
  Transmission Date: 20100710
  Serious: Yes (Hospitalization)
  Sender: FDA-Public Use
  Company Number: CIO09022254

PATIENT
  Sex: Male

DRUGS (2)
  1. NYQUIL ADULT, VERSION/FLAVOR UNKNOWN (ETHANOL 10-25%, DEXTROMETHORPHAN [Suspect]
     Dosage: ORAL LIQUID, 30ML
     Route: 048
  2. THERAFLU /00446801/ (CHLORPHENAMINE MALEATE, PARACETAMOL, PSEUDOEPHEDR [Suspect]
     Dosage: ORAL
     Route: 048

REACTIONS (4)
  - CONVULSION [None]
  - HYPERTENSION [None]
  - LABELLED DRUG-DRUG INTERACTION MEDICATION ERROR [None]
  - UPPER LIMB FRACTURE [None]
